FAERS Safety Report 18689806 (Version 3)
Quarter: 2022Q1

REPORT INFORMATION
  Report Type: Spontaneous
  Country: BR (occurrence: BR)
  Receive Date: 20201231
  Receipt Date: 20220131
  Transmission Date: 20220423
  Serious: Yes (Death, Other)
  Sender: FDA-Public Use
  Company Number: BR-009507513-2012BRA012430

PATIENT
  Age: 76 Year
  Sex: Female

DRUGS (3)
  1. ZERBAXA [Suspect]
     Active Substance: CEFTOLOZANE SULFATE\TAZOBACTAM SODIUM
     Indication: Pneumonia pseudomonal
     Dosage: 3 G EACH 8 HOURS
     Route: 042
     Dates: start: 20201201, end: 20201211
  2. ZERBAXA [Suspect]
     Active Substance: CEFTOLOZANE SULFATE\TAZOBACTAM SODIUM
     Dosage: 3 G EACH 8 HOURS
     Route: 042
     Dates: start: 20201201, end: 20201211
  3. ZERBAXA [Suspect]
     Active Substance: CEFTOLOZANE SULFATE\TAZOBACTAM SODIUM
     Dosage: 3 G EACH 8 HOURS
     Route: 042
     Dates: start: 20201201, end: 20201211

REACTIONS (2)
  - Death [Fatal]
  - Treatment failure [Fatal]

NARRATIVE: CASE EVENT DATE: 20201201
